FAERS Safety Report 7500743-7 (Version None)
Quarter: 2011Q2

REPORT INFORMATION
  Report Type: 
  Country: None (occurrence: None)
  Receive Date: 20110524
  Receipt Date: 20110516
  Transmission Date: 20111010
  Serious: Yes (Hospitalization)
  Sender: FDA-Public Use
  Company Number: DE-BRISTOL-MYERS SQUIBB COMPANY-15765381

PATIENT
  Age: 51 Year
  Sex: Male

DRUGS (2)
  1. CETUXIMAB [Suspect]
     Indication: NON-SMALL CELL LUNG CANCER
     Dosage: LAST DOSE ON 09MAY2011
     Dates: start: 20110401
  2. GEMCITABINE [Suspect]
     Indication: NON-SMALL CELL LUNG CANCER
     Dosage: LAST DOSE ON 02MAY2011
     Dates: start: 20110401

REACTIONS (3)
  - CONFUSIONAL STATE [None]
  - FATIGUE [None]
  - LUNG INFILTRATION [None]
